FAERS Safety Report 9219361 (Version 1)
Quarter: 2013Q1

REPORT INFORMATION
  Report Type: Spontaneous
  Country: US (occurrence: US)
  Receive Date: 20120830
  Receipt Date: 20120830
  Transmission Date: 20140127
  Serious: Yes (Other)
  Sender: FDA-Public Use
  Company Number: PHEH2012US000790

PATIENT
  Sex: Male

DRUGS (1)
  1. EXFORGE [Suspect]
     Dates: start: 20111215

REACTIONS (3)
  - Heart rate decreased [None]
  - Heart rate irregular [None]
  - Blood pressure increased [None]
